FAERS Safety Report 24246176 (Version 1)
Quarter: 2024Q3

REPORT INFORMATION
  Report Type: Report from Study
  Country: CA (occurrence: CA)
  Receive Date: 20240824
  Receipt Date: 20240824
  Transmission Date: 20241017
  Serious: Yes (Other)
  Sender: TAKEDA
  Company Number: CA-TAKEDA-2024TUS073311

PATIENT
  Age: 40 Year
  Sex: Female
  Weight: 81.6 kg

DRUGS (3)
  1. VEDOLIZUMAB [Suspect]
     Active Substance: VEDOLIZUMAB
     Indication: Colitis ulcerative
     Dosage: 300 MILLIGRAM
     Route: 042
     Dates: start: 20160608
  2. MESALAMINE [Concomitant]
     Active Substance: MESALAMINE
     Dosage: UNK
  3. DEPO-PROVERA [Concomitant]
     Active Substance: MEDROXYPROGESTERONE ACETATE
     Dosage: UNK

REACTIONS (3)
  - Abortion spontaneous [Unknown]
  - Subchorionic haemorrhage [Unknown]
  - Pregnancy [Recovered/Resolved]
